FAERS Safety Report 8098631-3 (Version None)
Quarter: 2012Q1

REPORT INFORMATION
  Report Type: 
  Country: None (occurrence: None)
  Receive Date: 20120129
  Receipt Date: 20111024
  Transmission Date: 20120608
  Serious: No
  Sender: FDA-Public Use
  Company Number: US-ABBOTT-11P-163-0867661-00

PATIENT
  Age: 53 Year
  Sex: Male

DRUGS (9)
  1. HYDROCODONE BITARTRATE [Concomitant]
     Indication: BACK DISORDER
  2. ACTOS [Concomitant]
     Indication: PRODUCT USED FOR UNKNOWN INDICATION
  3. HUMIRA [Suspect]
     Indication: PSORIASIS
     Dosage: LOADING DOSE
     Dates: start: 20111014
  4. DIOVAN [Concomitant]
     Indication: HYPERTENSION
  5. METOPROLOL TARTRATE [Concomitant]
     Indication: BLOOD PRESSURE
  6. CHOLESTEROL PILL [Concomitant]
     Indication: BLOOD CHOLESTEROL
  7. ASPIRIN [Concomitant]
     Indication: ANTICOAGULANT THERAPY
  8. BLOOD PRESSURE PILL [Concomitant]
     Indication: BLOOD PRESSURE
  9. HEART PILL [Concomitant]
     Indication: PRODUCT USED FOR UNKNOWN INDICATION

REACTIONS (3)
  - PRURITUS GENERALISED [None]
  - INSOMNIA [None]
  - PAIN [None]
